FAERS Safety Report 14906554 (Version 3)
Quarter: 2020Q1

REPORT INFORMATION
  Report Type: Report from Study
  Country: CO (occurrence: CO)
  Receive Date: 20180517
  Receipt Date: 20200131
  Transmission Date: 20200409
  Serious: Yes (Other)
  Sender: FDA-Public Use
  Company Number: CO-ROCHE-2124177

PATIENT
  Sex: Female
  Weight: 68 kg

DRUGS (3)
  1. INSULIN [Concomitant]
     Active Substance: INSULIN NOS
     Indication: DIABETES MELLITUS
     Route: 065
  2. LUCENTIS [Suspect]
     Active Substance: RANIBIZUMAB
     Indication: DIABETIC RETINAL OEDEMA
     Route: 047
     Dates: start: 20161212
  3. LUCENTIS [Suspect]
     Active Substance: RANIBIZUMAB
     Indication: MACULAR OEDEMA

REACTIONS (7)
  - Blood glucose decreased [Unknown]
  - Feeling abnormal [Unknown]
  - Syncope [Unknown]
  - Frustration tolerance decreased [Unknown]
  - Vision blurred [Unknown]
  - Gait disturbance [Unknown]
  - Blindness [Unknown]
